FAERS Safety Report 15903445 (Version 1)
Quarter: 2019Q1

REPORT INFORMATION
  Report Type: Other
  Country: IN (occurrence: IN)
  Receive Date: 20190203
  Receipt Date: 20190203
  Transmission Date: 20190417
  Serious: Yes (Other)
  Sender: FDA-Public Use
  Company Number: IN-DEXPHARM-20190058

PATIENT
  Age: 6 Year
  Sex: Female

DRUGS (1)
  1. CHLORHEXIDINE-ALCOHOL [Suspect]
     Active Substance: ALCOHOL\CHLORHEXIDINE GLUCONATE
     Indication: SURGERY

REACTIONS (2)
  - Visual impairment [Unknown]
  - Chemical burns of eye [Unknown]
